FAERS Safety Report 19954921 (Version 1)
Quarter: 2021Q4

REPORT INFORMATION
  Report Type: Spontaneous
  Country: US (occurrence: US)
  Receive Date: 20211013
  Receipt Date: 20211013
  Transmission Date: 20220303
  Serious: Yes (Other)
  Sender: FDA-Public Use
  Company Number: US-SUNOVION-2021SUN003895

PATIENT
  Age: 86 Year
  Sex: Female

DRUGS (1)
  1. KYNMOBI [Suspect]
     Active Substance: APOMORPHINE HYDROCHLORIDE
     Indication: Parkinson^s disease
     Dosage: 10 MG
     Route: 060
     Dates: start: 20211006, end: 20211006

REACTIONS (6)
  - Blood pressure decreased [Recovered/Resolved]
  - Unresponsive to stimuli [Recovered/Resolved]
  - Drooling [Recovered/Resolved]
  - Lethargy [Recovered/Resolved]
  - Dysstasia [Recovered/Resolved]
  - Rhinorrhoea [Recovered/Resolved]

NARRATIVE: CASE EVENT DATE: 20211006
